FAERS Safety Report 4550927-5 (Version None)
Quarter: 2004Q4

REPORT INFORMATION
  Report Type: 
  Country: None (occurrence: None)
  Receive Date: 20041217
  Receipt Date: 20040903
  Transmission Date: 20050328
  Serious: No
  Sender: FDA-Public Use
  Company Number: 2004-BP-07772BP

PATIENT
  Age: 69 Year
  Sex: Male

DRUGS (9)
  1. SPIRIVA [Suspect]
     Indication: EMPHYSEMA
     Dosage: 18 MCG (18 MCG), IH
     Route: 055
     Dates: start: 20040814, end: 20040831
  2. ZYDONE (VICODIN) [Concomitant]
  3. ROBAXIN [Concomitant]
  4. FLEXERIL [Concomitant]
  5. XANAX [Concomitant]
  6. FOLIC ACID [Concomitant]
  7. CARDIZEM LA [Concomitant]
  8. ALLOPURINOL [Concomitant]
  9. CENTRUM (CENTRUM) [Concomitant]

REACTIONS (2)
  - CHEST DISCOMFORT [None]
  - DYSPNOEA [None]
